FAERS Safety Report 22006337 (Version 1)
Quarter: 2023Q1

REPORT INFORMATION
  Report Type: Spontaneous
  Country: CN (occurrence: CN)
  Receive Date: 20230217
  Receipt Date: 20230217
  Transmission Date: 20230417
  Serious: Yes (Death)
  Sender: FDA-Public Use
  Company Number: CN-002147023-NVSC2023CN035313

PATIENT

DRUGS (6)
  1. CYCLOSPORINE [Suspect]
     Active Substance: CYCLOSPORINE
     Indication: Foetal exposure during pregnancy
     Dosage: MATERNAL EXPOSURE DURING PREGNANCY-50 MG (2-3 TIMES/D)
     Route: 064
  2. PROGESTERONE [Suspect]
     Active Substance: PROGESTERONE
     Indication: Foetal exposure during pregnancy
     Dosage: MATERNAL EXPOSURE DURING PREGNANCY-20 MG, QD (20MG/TIME, 1 TIME/D, UNTIL 10 WEEKS OF PREGNANCY)
     Route: 064
  3. PROGESTERONE [Suspect]
     Active Substance: PROGESTERONE
     Indication: Foetal exposure during pregnancy
     Dosage: MATERNAL EXPOSURE DURING PREGNANCY-100 MG, BID  (100MG/TIME, 2 TIMES/D, UNTIL 12 WEEKS OF PREGNANCY)
     Route: 064
  4. HUMAN CHORIONIC GONADOTROPIN [Suspect]
     Active Substance: GONADOTROPHIN, CHORIONIC
     Indication: Foetal exposure during pregnancy
     Dosage: MATERNAL EXPOSURE DURING PREGNANCY-(1000U/TIME, 1 TIME/D, FOR 1 TO 2 CONSECUTIVE WEEKS)
     Route: 064
  5. VITAMIN E [Suspect]
     Active Substance: .ALPHA.-TOCOPHEROL
     Indication: Foetal exposure during pregnancy
     Dosage: MATERNAL EXPOSURE DURING PREGNANCY-100MG/TIME, 3 TIMES/D, UNTIL 12 WEEKS OF PREGNANCY
     Route: 064
  6. UNSPECIFIED INGREDIENT [Suspect]
     Active Substance: UNSPECIFIED INGREDIENT
     Indication: Foetal exposure during pregnancy
     Dosage: MATERNAL EXPOSURE DURING PREGNANCY-5000 IU (5000IU/ TIME, 1-2 TIMES/D)
     Route: 064

REACTIONS (2)
  - Premature baby death [Fatal]
  - Foetal exposure during pregnancy [Unknown]
